FAERS Safety Report 20999384 (Version 2)
Quarter: 2022Q3

REPORT INFORMATION
  Report Type: Spontaneous
  Country: US (occurrence: US)
  Receive Date: 20220623
  Receipt Date: 20220708
  Transmission Date: 20221026
  Serious: Yes (Hospitalization, Other)
  Sender: FDA-Public Use
  Company Number: US-TEVA-2022-US-2047547

PATIENT
  Age: 6 Decade
  Sex: Female

DRUGS (4)
  1. TRIAMCINOLONE [Suspect]
     Active Substance: TRIAMCINOLONE
     Indication: Periarthritis
     Route: 065
  2. EPINEPHRINE [Suspect]
     Active Substance: EPINEPHRINE
     Indication: Periarthritis
     Dosage: INTRA-ARTICULAR PAIN PUMP; AT A FLOW RATE OF 2 ML/HR.
     Route: 014
  3. BUPIVACAINE [Suspect]
     Active Substance: BUPIVACAINE
     Indication: Periarthritis
     Route: 065
  4. BUPIVACAINE [Suspect]
     Active Substance: BUPIVACAINE
     Dosage: INTRA-ARTICULAR PAIN PUMP; AT A FLOW RATE OF 2 ML/HR.
     Route: 014

REACTIONS (2)
  - Chondrolysis [Recovering/Resolving]
  - Treatment failure [Unknown]
